FAERS Safety Report 5030490-5 (Version None)
Quarter: 2006Q2

REPORT INFORMATION
  Report Type: 
  Country: None (occurrence: None)
  Receive Date: 20060614
  Receipt Date: 20060601
  Transmission Date: 20061013
  Serious: Yes (Hospitalization)
  Sender: FDA-Public Use
  Company Number: 225990

PATIENT
  Age: 55 Year
  Sex: Male
  Weight: 77.2 kg

DRUGS (4)
  1. RITUXAN [Suspect]
     Indication: NON-HODGKIN'S LYMPHOMA
     Dosage: 687 MG, INTRAVENOUS
     Route: 042
     Dates: start: 20060511
  2. FLUDARABINE [Suspect]
     Indication: LYMPHOMA
     Dosage: 70 MG, ORAL
     Route: 048
     Dates: start: 20060511
  3. CALONAL (ACETAMINOPHEN) [Concomitant]
  4. POLARAMINE [Concomitant]

REACTIONS (3)
  - DEEP VEIN THROMBOSIS [None]
  - INFLAMMATION [None]
  - INTERNATIONAL NORMALISED RATIO INCREASED [None]
